FAERS Safety Report 5206428-4 (Version None)
Quarter: 2007Q1

REPORT INFORMATION
  Report Type: 
  Country: None (occurrence: None)
  Receive Date: 20070109
  Receipt Date: 20061220
  Transmission Date: 20070707
  Serious: Yes (Other)
  Sender: FDA-Public Use
  Company Number: 2411512-2007-00007

PATIENT
  Age: 47 Year
  Sex: Female

DRUGS (2)
  1. E-Z-HD BARIUM SULFATE FOR SUSPENSION (98% W/W) [Suspect]
     Indication: X-RAY
     Dosage: 65ML TO 135ML ORAL
     Route: 048
     Dates: start: 20061108
  2. LIQUID POLIBAR BARIUM SULFATE SUSPENSION (100% W/V [Suspect]
     Indication: X-RAY GASTROINTESTINAL TRACT
     Dosage: 150ML TO 340ML ORAL
     Route: 048
     Dates: start: 20061108

REACTIONS (2)
  - BLOOD GLUCOSE INCREASED [None]
  - MALAISE [None]
